FAERS Safety Report 21298784 (Version 2)
Quarter: 2022Q4

REPORT INFORMATION
  Report Type: Report from Study
  Country: US (occurrence: None)
  Receive Date: 20220906
  Receipt Date: 20221012
  Transmission Date: 20230113
  Serious: Yes (Hospitalization, Other)
  Sender: FDA-Public Use
  Company Number: US-Merck Healthcare KGaA-9348048

PATIENT
  Sex: Female

DRUGS (2)
  1. MAVENCLAD [Suspect]
     Active Substance: CLADRIBINE
     Indication: Multiple sclerosis
     Dosage: YEAR ONE MONTH ONE THERAPY: 2 TABLETS ON DAY 1 AND 1 TABLET ON DAYS 2 TO 5
     Route: 048
     Dates: start: 20220228, end: 20220304
  2. MAVENCLAD [Suspect]
     Active Substance: CLADRIBINE
     Dosage: YEAR ONE MONTH TWO THERAPY: 2 TABLETS ON DAY 1 AND 1 TABLET ON DAYS 2 TO 5
     Route: 048
     Dates: start: 20220328, end: 20220401

REACTIONS (4)
  - Pneumonia bacterial [Recovering/Resolving]
  - Syncope [Unknown]
  - Blood pressure decreased [Unknown]
  - Tinnitus [Unknown]
